FAERS Safety Report 9925862 (Version 1)
Quarter: 2014Q1

REPORT INFORMATION
  Report Type: Spontaneous
  Country: US (occurrence: US)
  Receive Date: 20140226
  Receipt Date: 20140226
  Transmission Date: 20141002
  Serious: Yes (Hospitalization, Other)
  Sender: FDA-Public Use
  Company Number: 2014SP000521

PATIENT
  Age: 47 Year
  Sex: Female
  Weight: 90 kg

DRUGS (4)
  1. LATUDA [Suspect]
     Indication: DEPRESSION
     Route: 048
     Dates: start: 201401, end: 20140206
  2. PROZAC [Concomitant]
     Route: 048
  3. KLONOPIN [Concomitant]
  4. SENNA SPP. [Concomitant]
     Indication: CONSTIPATION

REACTIONS (8)
  - Homicidal ideation [Recovered/Resolved]
  - Suicidal ideation [Recovered/Resolved]
  - Muscular weakness [Recovered/Resolved]
  - Arthralgia [Recovered/Resolved]
  - Depression [Recovered/Resolved]
  - Galactorrhoea [Recovered/Resolved]
  - Weight increased [Unknown]
  - Drug ineffective for unapproved indication [None]
